FAERS Safety Report 12747603 (Version 1)
Quarter: 2016Q3

REPORT INFORMATION
  Report Type: Spontaneous
  Country: US (occurrence: US)
  Receive Date: 20160915
  Receipt Date: 20160915
  Transmission Date: 20161109
  Serious: No
  Sender: FDA-Public Use
  Company Number: US-JAZZ-2016-US-009945

PATIENT
  Age: 43 Year
  Sex: Female

DRUGS (28)
  1. LEVOTHYROXINE. [Concomitant]
     Active Substance: LEVOTHYROXINE
  2. ADVAIR HFA [Concomitant]
     Active Substance: FLUTICASONE PROPIONATE\SALMETEROL XINAFOATE
  3. SUDAFED PE CONGESTION [Concomitant]
     Active Substance: PHENYLEPHRINE HYDROCHLORIDE
  4. XYREM [Suspect]
     Active Substance: SODIUM OXYBATE
     Dosage: 1.75 G, BID
     Route: 048
     Dates: start: 201410, end: 201503
  5. XYREM [Suspect]
     Active Substance: SODIUM OXYBATE
     Dosage: 3.75 G, BID
     Route: 048
     Dates: start: 201601
  6. LEXAPRO [Concomitant]
     Active Substance: ESCITALOPRAM OXALATE
  7. AUGMENTIN [Concomitant]
     Active Substance: AMOXICILLIN\CLAVULANATE POTASSIUM
  8. MEDROL [Concomitant]
     Active Substance: METHYLPREDNISOLONE
  9. ZITHROMAX [Concomitant]
     Active Substance: AZITHROMYCIN DIHYDRATE
  10. ZOLOFT [Concomitant]
     Active Substance: SERTRALINE HYDROCHLORIDE
  11. XYREM [Suspect]
     Active Substance: SODIUM OXYBATE
     Indication: INSOMNIA
     Dosage: 2.25 G, BID
     Route: 048
     Dates: start: 201204, end: 2012
  12. XYREM [Suspect]
     Active Substance: SODIUM OXYBATE
     Dosage: 2.25 G, BID
     Route: 048
     Dates: start: 201503, end: 201601
  13. NEXIUM [Concomitant]
     Active Substance: ESOMEPRAZOLE MAGNESIUM
  14. CALCIUM VITAMIN D [Concomitant]
     Active Substance: CALCIUM\VITAMIN D
  15. MAGNESIUM OXIDE. [Concomitant]
     Active Substance: MAGNESIUM OXIDE
  16. VITAMIN D3 [Concomitant]
     Active Substance: CHOLECALCIFEROL
  17. MULTIVITAMINS [Concomitant]
     Active Substance: VITAMINS
  18. OMEPRAZOLE. [Concomitant]
     Active Substance: OMEPRAZOLE
  19. METFORMIN [Concomitant]
     Active Substance: METFORMIN HYDROCHLORIDE
  20. IBUPROFEN. [Concomitant]
     Active Substance: IBUPROFEN
  21. EMERGEN C [Concomitant]
     Active Substance: MINERALS\VITAMINS
  22. ADDERALL [Concomitant]
     Active Substance: AMPHETAMINE ASPARTATE\AMPHETAMINE SULFATE\DEXTROAMPHETAMINE SACCHARATE\DEXTROAMPHETAMINE SULFATE
  23. LORATADINE. [Concomitant]
     Active Substance: LORATADINE
  24. DIFLUCAN [Concomitant]
     Active Substance: FLUCONAZOLE
  25. VYVANSE [Concomitant]
     Active Substance: LISDEXAMFETAMINE DIMESYLATE
  26. ALBUTEROL HFA [Concomitant]
     Active Substance: ALBUTEROL SULFATE
  27. XOPENEX HFA [Concomitant]
     Active Substance: LEVALBUTEROL TARTRATE
  28. NASONEX [Concomitant]
     Active Substance: MOMETASONE FUROATE

REACTIONS (10)
  - Fibromyalgia [Unknown]
  - Onychoclasis [Not Recovered/Not Resolved]
  - Myalgia [Unknown]
  - Grunting [Unknown]
  - Moaning [Unknown]
  - Dry skin [Not Recovered/Not Resolved]
  - Movement disorder [Unknown]
  - Wrong technique in product usage process [Unknown]
  - Hair texture abnormal [Not Recovered/Not Resolved]
  - Somnambulism [Unknown]

NARRATIVE: CASE EVENT DATE: 201601
